FAERS Safety Report 26122003 (Version 1)
Quarter: 2025Q4

REPORT INFORMATION
  Report Type: Spontaneous
  Country: US (occurrence: US)
  Receive Date: 20251204
  Receipt Date: 20251204
  Transmission Date: 20260118
  Serious: No
  Sender: MYLAN
  Company Number: US-MYLANLABS-2025M1101414

PATIENT

DRUGS (1)
  1. ESTRADIOL TRANSDERMAL SYSTEM [Suspect]
     Active Substance: ESTRADIOL
     Indication: Product used for unknown indication
     Dosage: 0.05 MILLIGRAM, QD (PER DAY, TWICE WEEKLY)

REACTIONS (8)
  - Application site swelling [Unknown]
  - Application site hypersensitivity [Unknown]
  - Dermatitis contact [Unknown]
  - Application site pruritus [Unknown]
  - Application site erythema [Unknown]
  - Application site urticaria [Unknown]
  - Application site rash [Unknown]
  - Product substitution issue [Unknown]
